FAERS Safety Report 7350000-7 (Version None)
Quarter: 2011Q1

REPORT INFORMATION
  Report Type: 
  Country: None (occurrence: None)
  Receive Date: 20110314
  Receipt Date: 20110309
  Transmission Date: 20110831
  Serious: Yes (Other)
  Sender: FDA-Public Use
  Company Number: JP-BRISTOL-MYERS SQUIBB COMPANY-15537715

PATIENT

DRUGS (2)
  1. CISPLATIN [Suspect]
  2. LASTET [Suspect]

REACTIONS (2)
  - LOSS OF CONSCIOUSNESS [None]
  - BRADYCARDIA [None]
